FAERS Safety Report 14536634 (Version 1)
Quarter: 2018Q1

REPORT INFORMATION
  Report Type: Spontaneous
  Country: DE (occurrence: DE)
  Receive Date: 20180215
  Receipt Date: 20180215
  Transmission Date: 20180509
  Serious: Yes (Other)
  Sender: FDA-Public Use
  Company Number: DE-TEVA-2018-DE-854855

PATIENT
  Age: 80 Year
  Sex: Male

DRUGS (6)
  1. TAVOR (LORAZEPAM) [Concomitant]
     Active Substance: LORAZEPAM
  2. CARBIDOPA AND LEVODOPA [Suspect]
     Active Substance: CARBIDOPA\LEVODOPA
     Dosage: TAKEN FOR 6-7 WEEKS
     Route: 048
     Dates: start: 201712
  3. ROPINIROL 8 MG RETARD [Concomitant]
     Active Substance: ROPINIROLE
  4. MADOPAR RETARDKAPSELN [Concomitant]
     Active Substance: BENSERAZIDE HYDROCHLORIDE\LEVODOPA
  5. TORASEMID AL 5 MG [Concomitant]
     Active Substance: TORSEMIDE
  6. QUETIAPIN HEUMANN 25 MG [Concomitant]

REACTIONS (3)
  - Parkinson^s disease [Unknown]
  - Drug dispensing error [Unknown]
  - Incorrect drug dosage form administered [None]
